FAERS Safety Report 11328450 (Version 1)
Quarter: 2015Q3

REPORT INFORMATION
  Report Type: Spontaneous
  Country: FR (occurrence: FR)
  Receive Date: 20150731
  Receipt Date: 20150731
  Transmission Date: 20151125
  Serious: Yes (Death)
  Sender: FDA-Public Use
  Company Number: FR-AMEDRA PHARMACEUTICALS LLC-2015AMD00153

PATIENT

DRUGS (1)
  1. EPINEPHRINE. [Suspect]
     Active Substance: EPINEPHRINE
     Indication: SUDDEN CARDIAC DEATH
     Dosage: MEDIAN DOSE: 5 MG
     Route: 065

REACTIONS (1)
  - Sudden cardiac death [Fatal]
